FAERS Safety Report 6988122-2 (Version None)
Quarter: 2010Q3

REPORT INFORMATION
  Report Type: 
  Country: None (occurrence: None)
  Receive Date: 20100916
  Receipt Date: 20100909
  Transmission Date: 20110219
  Serious: Yes (Other)
  Sender: FDA-Public Use
  Company Number: B0674195A

PATIENT
  Age: 84 Year
  Sex: Male
  Weight: 62 kg

DRUGS (6)
  1. VALTREX [Suspect]
     Indication: HERPES ZOSTER
     Dosage: 1000MG PER DAY
     Route: 048
     Dates: start: 20100812, end: 20100814
  2. VIDARABINE [Concomitant]
     Route: 061
     Dates: start: 20100812
  3. CETAPRIL [Concomitant]
     Route: 048
  4. WARFARIN SODIUM [Concomitant]
     Route: 048
  5. MAGNESIUM OXIDE [Concomitant]
     Route: 048
  6. AMARYL [Concomitant]
     Route: 048

REACTIONS (2)
  - APHAGIA [None]
  - DEPRESSED LEVEL OF CONSCIOUSNESS [None]
